FAERS Safety Report 25313765 (Version 1)
Quarter: 2025Q2

REPORT INFORMATION
  Report Type: Report from Study
  Country: FR (occurrence: FR)
  Receive Date: 20250514
  Receipt Date: 20250514
  Transmission Date: 20250717
  Serious: Yes (Hospitalization)
  Sender: ABBVIE
  Company Number: FR-ABBVIE-6275675

PATIENT
  Age: 75 Year
  Sex: Male

DRUGS (1)
  1. FOSCARBIDOPA\FOSLEVODOPA [Suspect]
     Active Substance: FOSCARBIDOPA\FOSLEVODOPA
     Indication: Product used for unknown indication
     Route: 058
     Dates: start: 20250401

REACTIONS (4)
  - Hyperthermia [Not Recovered/Not Resolved]
  - Infusion site abscess [Not Recovered/Not Resolved]
  - Infusion site inflammation [Not Recovered/Not Resolved]
  - Infusion site nodule [Not Recovered/Not Resolved]

NARRATIVE: CASE EVENT DATE: 20250101
